FAERS Safety Report 21872153 (Version 1)
Quarter: 2023Q1

REPORT INFORMATION
  Report Type: Spontaneous
  Country: US (occurrence: None)
  Receive Date: 20230115
  Receipt Date: 20230115
  Transmission Date: 20230418
  Serious: Yes (Other)
  Sender: FDA-Public Use
  Company Number: None

PATIENT
  Sex: Female

DRUGS (2)
  1. KISQALI [Suspect]
     Active Substance: RIBOCICLIB
     Indication: Breast cancer female
     Dosage: 200 MG ORAL??TAKKE 3 TABLETS BY MOUTH EVERY DAY FOR 21 DAYS THEN 7 DAYS OFF
     Route: 048
     Dates: start: 20210603
  2. KISQALI [Suspect]
     Active Substance: RIBOCICLIB
     Dosage: OTHER FREQUENCY : QD 21D THEN 7D OFF;?
     Route: 048

REACTIONS (1)
  - Emergency care [None]

NARRATIVE: CASE EVENT DATE: 20230101
